FAERS Safety Report 4847671-3 (Version None)
Quarter: 2005Q4

REPORT INFORMATION
  Report Type: 
  Country: None (occurrence: None)
  Receive Date: 20051205
  Receipt Date: 20050902
  Transmission Date: 20060501
  Serious: Yes (Death, Other)
  Sender: FDA-Public Use
  Company Number: 2005-CZ-00472

PATIENT
  Age: 77 Year
  Sex: 0

DRUGS (2)
  1. PREDNISOLONE TAB [Suspect]
     Dosage: 7.5 MG, UNKNOWN
     Route: 065
  2. IBUPROFEN [Concomitant]

REACTIONS (1)
  - INTESTINAL PERFORATION [None]
